FAERS Safety Report 9885949 (Version 4)
Quarter: 2014Q1

REPORT INFORMATION
  Report Type: Report from Study
  Country: FR (occurrence: FR)
  Receive Date: 20140210
  Receipt Date: 20140310
  Transmission Date: 20141002
  Serious: Yes (Death, Life-Threatening)
  Sender: FDA-Public Use
  Company Number: FR-SA-2014SA014474

PATIENT
  Age: 58 Year
  Sex: Female

DRUGS (5)
  1. PLERIXAFOR [Suspect]
     Indication: ACUTE MYELOID LEUKAEMIA
     Route: 041
     Dates: start: 20140113, end: 20140122
  2. DAUNORUBICIN [Suspect]
     Indication: ACUTE MYELOID LEUKAEMIA
     Route: 042
     Dates: start: 20140113, end: 20140115
  3. CYTARABINE [Suspect]
     Indication: ACUTE MYELOID LEUKAEMIA
     Route: 042
     Dates: start: 20140113, end: 20140122
  4. LENOGRASTIM [Suspect]
     Indication: ACUTE MYELOID LEUKAEMIA
     Route: 041
     Dates: start: 20140113, end: 20140122
  5. TAZOCILLINE [Concomitant]
     Indication: FEBRILE NEUTROPENIA
     Route: 042
     Dates: end: 20140201

REACTIONS (3)
  - Febrile neutropenia [Fatal]
  - Pneumonia [Fatal]
  - Septic shock [Fatal]
